FAERS Safety Report 5166198-5 (Version None)
Quarter: 2006Q4

REPORT INFORMATION
  Report Type: 
  Country: None (occurrence: None)
  Receive Date: 20060830
  Receipt Date: 20060413
  Transmission Date: 20070319
  Serious: No
  Sender: FDA-Public Use
  Company Number: 224083

PATIENT
  Age: 52 Year
  Sex: Female
  Weight: 102 kg

DRUGS (13)
  1. XOLAIR [Suspect]
     Indication: ASTHMA
     Dosage: 150 MG, Q4W
     Dates: start: 20050601
  2. SINGULAIR [Concomitant]
  3. THEOPHYLLINE [Concomitant]
  4. PULMICORT [Concomitant]
  5. SEREVENT [Concomitant]
  6. XOPENEX [Concomitant]
  7. ALLEGRA [Concomitant]
  8. PATANOL [Concomitant]
  9. SYNTHROID [Concomitant]
  10. ALENDRONATE (ALENDRONATE SODIUM) [Concomitant]
  11. CALCIUM (CALCIUM NOS) [Concomitant]
  12. ACIPHEX [Concomitant]
  13. STATIN  (STATINS NOS) [Concomitant]

REACTIONS (1)
  - MYALGIA [None]
